FAERS Safety Report 17248225 (Version 2)
Quarter: 2020Q1

REPORT INFORMATION
  Report Type: Report from Study
  Country: US (occurrence: US)
  Receive Date: 20200108
  Receipt Date: 20200212
  Transmission Date: 20200409
  Serious: No
  Sender: FDA-Public Use
  Company Number: US-OTSUKA-2019_023086

PATIENT
  Age: 47 Year

DRUGS (1)
  1. TOLVAPTAN [Suspect]
     Active Substance: TOLVAPTAN
     Indication: CONGENITAL CYSTIC KIDNEY DISEASE
     Dosage: UNK
     Route: 048
     Dates: start: 20190427

REACTIONS (3)
  - Dyspepsia [Unknown]
  - Nocturia [Unknown]
  - Vomiting [Unknown]

NARRATIVE: CASE EVENT DATE: 20190605
